FAERS Safety Report 17462387 (Version 1)
Quarter: 2020Q1

REPORT INFORMATION
  Report Type: Spontaneous
  Country: US (occurrence: US)
  Receive Date: 20200226
  Receipt Date: 20200226
  Transmission Date: 20200409
  Serious: Yes (Disabling)
  Sender: FDA-Public Use
  Company Number: None

PATIENT
  Age: 50 Year
  Sex: Female
  Weight: 56.25 kg

DRUGS (8)
  1. VITAMIN D3 [Concomitant]
     Active Substance: CHOLECALCIFEROL
  2. VITAMIN B12 [Concomitant]
     Active Substance: CYANOCOBALAMIN
  3. MAGNESIUM TAURATE [Concomitant]
  4. VITAMIN K2 [Concomitant]
     Active Substance: MENAQUINONE 6
  5. AIMOVIG [Suspect]
     Active Substance: ERENUMAB-AOOE
     Dosage: ?          QUANTITY:1 INJECTION(S);OTHER FREQUENCY:Q 30 DAYS;OTHER ROUTE:INJECTION SUBCUTANEOUS?
     Dates: start: 20181019, end: 20200115
  6. NATURE-THROID [Concomitant]
     Active Substance: THYROID, PORCINE
  7. MAGNESIUM MALATE. [Concomitant]
     Active Substance: MAGNESIUM MALATE
  8. TOPIRAMATE. [Concomitant]
     Active Substance: TOPIRAMATE

REACTIONS (8)
  - Lethargy [None]
  - Musculoskeletal stiffness [None]
  - Abnormal dreams [None]
  - Joint stiffness [None]
  - Insomnia [None]
  - Constipation [None]
  - Hot flush [None]
  - Visual acuity reduced [None]

NARRATIVE: CASE EVENT DATE: 20191127
